FAERS Safety Report 4537768-X (Version None)
Quarter: 2004Q4

REPORT INFORMATION
  Report Type: 
  Country: None (occurrence: None)
  Receive Date: 20041224
  Receipt Date: 20041214
  Transmission Date: 20050328
  Serious: Yes (Other)
  Sender: FDA-Public Use
  Company Number: JP-MERCK-0412USA02153

PATIENT
  Age: 70 Year
  Sex: Male

DRUGS (4)
  1. PRIMAXIN [Suspect]
     Indication: POSTOPERATIVE INFECTION
     Route: 042
     Dates: start: 20041130, end: 20041214
  2. WARFARIN POTASSIUM [Concomitant]
     Route: 048
  3. LASIX [Concomitant]
     Route: 065
  4. BLOPRESS [Concomitant]
     Route: 048

REACTIONS (3)
  - CARDIAC VALVE DISEASE [None]
  - CONVULSION [None]
  - ELECTROENCEPHALOGRAM ABNORMAL [None]
